FAERS Safety Report 6147231-0 (Version None)
Quarter: 2009Q2

REPORT INFORMATION
  Report Type: 
  Country: None (occurrence: None)
  Receive Date: 20090408
  Receipt Date: 20071029
  Transmission Date: 20091009
  Serious: Yes (Death, Hospitalization, Other)
  Sender: FDA-Public Use
  Company Number: US-ASTRAZENECA-2006UW10156

PATIENT
  Age: 899 Month
  Sex: Male
  Weight: 80.7 kg

DRUGS (22)
  1. SEROQUEL [Suspect]
     Indication: DEPRESSION
     Route: 048
     Dates: end: 20040314
  2. SEROQUEL [Suspect]
     Indication: DELIRIUM
     Route: 048
     Dates: end: 20040314
  3. SEROQUEL [Suspect]
     Route: 048
     Dates: start: 20040304
  4. SEROQUEL [Suspect]
     Route: 048
     Dates: start: 20040304
  5. DEMEROL [Suspect]
  6. GEODON [Concomitant]
     Dates: start: 20040308
  7. LANOXIN [Concomitant]
  8. COUMADIN [Concomitant]
  9. LOPRESSOR [Concomitant]
  10. CARDURA [Concomitant]
  11. HYDROCHLOROTHIAZIDE [Concomitant]
  12. IMDUR [Concomitant]
  13. FOLTX [Concomitant]
  14. PLETAL [Concomitant]
  15. BEXTRA [Concomitant]
  16. PROZAC [Concomitant]
  17. PROSCAR [Concomitant]
  18. DEMADEX [Concomitant]
  19. VICODIN [Concomitant]
  20. ZAROXOLYN [Concomitant]
  21. SPIRONOLACTONE [Concomitant]
  22. REMERON [Concomitant]

REACTIONS (12)
  - ADVERSE DRUG REACTION [None]
  - ARTERIOSCLEROSIS [None]
  - BENIGN PROSTATIC HYPERPLASIA [None]
  - BLOOD PRESSURE INCREASED [None]
  - CELLULITIS [None]
  - ENCEPHALOPATHY [None]
  - NEUROLEPTIC MALIGNANT SYNDROME [None]
  - PROSTATISM [None]
  - RENAL FAILURE ACUTE [None]
  - SLEEP DISORDER [None]
  - TARDIVE DYSKINESIA [None]
  - THROMBOPHLEBITIS [None]
